FAERS Safety Report 15464850 (Version 1)
Quarter: 2018Q4

REPORT INFORMATION
  Report Type: Spontaneous
  Country: US (occurrence: US)
  Receive Date: 20181004
  Receipt Date: 20181004
  Transmission Date: 20190204
  Serious: No
  Sender: FDA-Public Use
  Company Number: US-TARO-2017TAR00768

PATIENT
  Sex: Male

DRUGS (1)
  1. CLOTRIMAZOLE 1% CREAM [Suspect]
     Active Substance: CLOTRIMAZOLE
     Indication: FUNGAL INFECTION
     Dosage: UNK
     Route: 061

REACTIONS (2)
  - Tongue discomfort [Unknown]
  - Eye irritation [Unknown]
